FAERS Safety Report 5733830-4 (Version None)
Quarter: 2008Q2

REPORT INFORMATION
  Report Type: 
  Country: None (occurrence: None)
  Receive Date: 20080509
  Receipt Date: 20080429
  Transmission Date: 20081010
  Serious: Yes (Life-Threatening, Hospitalization)
  Sender: FDA-Public Use
  Company Number: US-PFIZER INC-2008029929

PATIENT
  Age: 74 Year
  Sex: Male

DRUGS (12)
  1. TOLTERODINE TARTRATE [Suspect]
     Route: 048
     Dates: start: 20071121, end: 20080225
  2. OLMETEC [Suspect]
     Indication: ESSENTIAL HYPERTENSION
     Route: 048
  3. WARFARIN SODIUM [Concomitant]
     Route: 048
  4. AMLODIPINE BESILATE [Concomitant]
     Route: 048
  5. JUVELA [Concomitant]
     Route: 048
  6. NABOAL - SLOW RELEASE [Concomitant]
     Dosage: DAILY DOSE:37.5MG
     Route: 048
  7. MUCOSTA [Concomitant]
     Dosage: DAILY DOSE:300MG
     Route: 048
  8. LIPITOR [Concomitant]
     Route: 048
  9. GLYCYRON [Concomitant]
     Dosage: DAILY DOSE:75MG
     Route: 048
  10. CYANOCOBALAMIN [Concomitant]
     Dosage: DAILY DOSE:1.5MG
     Route: 048
  11. VASOLAN [Concomitant]
     Dosage: DAILY DOSE:120MG
     Route: 048
  12. PANALDINE [Concomitant]
     Dosage: DAILY DOSE:100MG
     Route: 048

REACTIONS (1)
  - CARDIAC FAILURE [None]
